FAERS Safety Report 8890476 (Version 4)
Quarter: 2012Q4

REPORT INFORMATION
  Report Type: 
  Country: US (occurrence: US)
  Receive Date: 20121107
  Receipt Date: 20121220
  Transmission Date: 20130627
  Serious: Yes (Death, Hospitalization)
  Sender: FDA-Public Use
  Company Number: US-ACTELION-A-US2012-73608

PATIENT
  Age: 73 Year
  Sex: Female

DRUGS (2)
  1. TRACLEER [Suspect]
     Indication: PULMONARY ARTERIAL HYPERTENSION
     Dosage: UNK
     Route: 048
     Dates: start: 20121005, end: 20121123
  2. COUMADIN [Concomitant]

REACTIONS (7)
  - Pulmonary arterial hypertension [Fatal]
  - Disease progression [Fatal]
  - Atrial fibrillation [Recovering/Resolving]
  - Dyspnoea [Fatal]
  - Lung disorder [Fatal]
  - Cardiac disorder [Fatal]
  - Heart rate increased [Recovering/Resolving]
